FAERS Safety Report 9792754 (Version 3)
Quarter: 2014Q2

REPORT INFORMATION
  Report Type: Report from Study
  Country: JP (occurrence: JP)
  Receive Date: 20140102
  Receipt Date: 20140623
  Transmission Date: 20141212
  Serious: Yes (Death, Hospitalization)
  Sender: FDA-Public Use
  Company Number: JP-SA-2013SA135577

PATIENT
  Age: 39 Year
  Sex: Male
  Weight: 86.2 kg

DRUGS (81)
  1. THYMOGLOBULINE [Suspect]
     Indication: BONE MARROW CONDITIONING REGIMEN
     Route: 042
     Dates: start: 20120928, end: 20120929
  2. BENAMBAX [Suspect]
     Indication: ANTIFUNGAL PROPHYLAXIS
     Route: 055
     Dates: end: 20121114
  3. PROGRAF [Suspect]
     Indication: PROPHYLAXIS AGAINST GRAFT VERSUS HOST DISEASE
     Dosage: PROGRAF INJECTION 5 MG/1ML
     Route: 065
     Dates: start: 20121001, end: 20121106
  4. PROGRAF [Suspect]
     Indication: PROPHYLAXIS AGAINST GRAFT VERSUS HOST DISEASE
     Dosage: PROGRAF CAPSULE 1 MG
     Route: 048
     Dates: start: 20121107, end: 20121205
  5. PROGRAF [Suspect]
     Indication: PROPHYLAXIS AGAINST GRAFT VERSUS HOST DISEASE
     Dosage: PROGRAF CAPSULE 0.5 MG
     Route: 048
     Dates: start: 20121105, end: 20121213
  6. PROGRAF [Suspect]
     Indication: PROPHYLAXIS AGAINST GRAFT VERSUS HOST DISEASE
     Dosage: PROGRAF GRANULE 0.2 MG/PACKAGE
     Route: 048
     Dates: start: 20121114, end: 20121210
  7. FOSCAVIR [Suspect]
     Indication: CYTOMEGALOVIRUS TEST POSITIVE
     Dosage: FOSCAVIR INFUSION SOLUTION 6 G
     Route: 042
     Dates: start: 20121118, end: 20121119
  8. PREDONINE [Suspect]
     Indication: PRODUCT USED FOR UNKNOWN INDICATION
     Route: 065
  9. TACROLIMUS [Suspect]
     Indication: PRODUCT USED FOR UNKNOWN INDICATION
     Route: 065
  10. CYCLOPHOSPHAMIDE [Suspect]
     Indication: BONE MARROW CONDITIONING REGIMEN
     Route: 065
     Dates: start: 20120926, end: 20120927
  11. ATARAX-P [Concomitant]
     Indication: PROPHYLAXIS
     Dosage: FORM: SOLUTION?STRENGTH: 25MG/1ML
     Route: 051
     Dates: start: 20120928, end: 20121122
  12. ATARAX-P [Concomitant]
     Indication: PROPHYLAXIS
     Dosage: FORM: SOLUTION?STRENGTH:50 MG/5 ML
     Route: 051
     Dates: start: 20121002, end: 20121002
  13. UROMITEXAN [Concomitant]
     Indication: PROPHYLAXIS
     Dosage: 400MG/4 ML
     Dates: start: 20120926, end: 20120928
  14. PLATELETS, HUMAN BLOOD [Concomitant]
     Dates: start: 20120928, end: 20130904
  15. GRANISETRON [Concomitant]
     Dosage: SOLUTION?3MG/100ML
     Route: 041
     Dates: start: 20120926, end: 20121001
  16. RED BLOOD CELLS [Concomitant]
     Dates: start: 20120914, end: 20130903
  17. IMMUNOGLOBULIN [Concomitant]
     Indication: ANTIVIRAL PROPHYLAXIS
     Dosage: 2500 MG
     Route: 042
     Dates: start: 20121002, end: 20130905
  18. IMMUNOGLOBULIN [Concomitant]
     Indication: FEBRILE NEUTROPENIA
     Dosage: 2500 MG
     Route: 042
     Dates: start: 20121002, end: 20130905
  19. SILECE [Concomitant]
     Indication: APLASTIC ANAEMIA
     Dosage: 2MG/1ML
     Route: 042
     Dates: start: 20120928, end: 20120928
  20. ZOSYN [Concomitant]
     Indication: FEBRILE NEUTROPENIA
     Dosage: STRENGTH: 4.5MG
     Route: 042
     Dates: start: 20120928, end: 20130131
  21. ZOSYN [Concomitant]
     Indication: FEBRILE NEUTROPENIA
     Dosage: STRENGTH: 2.25 G
     Route: 042
     Dates: start: 20121120, end: 20130131
  22. SOLU-CORTEF [Concomitant]
     Indication: PYREXIA
     Dosage: 100 MG
     Dates: start: 20120928, end: 20130312
  23. SOLU-MEDROL [Concomitant]
     Indication: APLASTIC ANAEMIA
     Dosage: 125 MG
     Route: 042
     Dates: start: 20120928, end: 20120929
  24. DALTEPARIN SODIUM [Concomitant]
     Indication: PROPHYLAXIS
     Dosage: 5000 UNITS/5 ML
     Route: 042
     Dates: start: 20120925, end: 20121024
  25. FUNGUARD [Concomitant]
     Indication: ANTIFUNGAL PROPHYLAXIS
     Dosage: 50 MG FOR INFUSION
     Dates: start: 20120926, end: 20121029
  26. FENTANYL [Concomitant]
     Indication: CHEST PAIN
     Dosage: STRENGTH: 100 MCG/2 ML
     Dates: start: 20121003, end: 20130227
  27. FENTANYL [Concomitant]
     Indication: CHEST PAIN
     Dosage: STRENGTH: 250MCG/5 ML
     Dates: start: 20130107, end: 20130325
  28. FLUDARA [Concomitant]
     Indication: APLASTIC ANAEMIA
     Dosage: 50 MG
     Route: 042
     Dates: start: 20120926, end: 20120930
  29. METHOTREXATE [Concomitant]
     Indication: PROPHYLAXIS AGAINST GRAFT VERSUS HOST DISEASE
     Dosage: PARENTERAL?5 MG
     Route: 042
     Dates: start: 20121003, end: 20121005
  30. ALL OTHER THERAPEUTIC PRODUCTS [Concomitant]
     Indication: PROPHYLAXIS
     Dosage: 2 ML
     Dates: start: 20120929, end: 20130905
  31. MEYLON [Concomitant]
     Indication: PROPHYLAXIS
     Dosage: 7% 20 ML
     Dates: start: 20120926, end: 20120928
  32. LASIX [Concomitant]
     Indication: FLUID RETENTION
     Dosage: 20 MG
     Dates: start: 20120926
  33. LASIX [Concomitant]
     Indication: FLUID RETENTION
     Dosage: 100 MG
     Dates: start: 20121004, end: 20121029
  34. MAGNESIUM SULFATE [Concomitant]
     Indication: ELECTROLYTE IMBALANCE
     Dosage: CORRECTIVE INJECTION?20 MEQ/20 ML
     Dates: start: 20120929, end: 20121108
  35. ROPION [Concomitant]
     Indication: PYREXIA
     Dosage: 50 MG/5 ML
     Route: 042
     Dates: start: 20120927, end: 20130227
  36. ALBUMINAR [Concomitant]
     Indication: ADVERSE EVENT
     Dosage: STRENGTH: 25%
     Route: 042
     Dates: start: 20121003, end: 20121009
  37. INOVAN [Concomitant]
     Indication: FLUID RETENTION
     Dosage: STRENGTH: 0.3% SYRINGE 150 MG/50 ML
     Dates: start: 20121004, end: 20121026
  38. ALL OTHER THERAPEUTIC PRODUCTS [Concomitant]
     Indication: RENAL IMPAIRMENT
     Dosage: STRENGTH: 2000 UNITS/100 ML
     Route: 042
     Dates: start: 20121002, end: 20121023
  39. POTASSIUM CHLORIDE [Concomitant]
     Indication: FLUID RETENTION
     Dosage: DRIP INJECTION?STRENGTH: 15% 40 MEQ/20ML
     Dates: start: 20121006, end: 20130315
  40. TEICOPLANIN [Concomitant]
     Indication: FEBRILE NEUTROPENIA
     Dosage: STRENGTH: 200 MG
     Dates: start: 20121006, end: 20130107
  41. NEOLAMIN MULTI V [Concomitant]
     Indication: PROPHYLAXIS
     Dates: start: 20121006, end: 20130905
  42. NEOLAMIN MULTI V [Concomitant]
     Indication: NUTRITIONAL SUPPLEMENTATION
     Dates: start: 20121006, end: 20130905
  43. FINIBAX [Concomitant]
     Indication: FEBRILE NEUTROPENIA
     Dosage: 0.5 G FOR I.V. INFUSION
     Route: 041
     Dates: start: 20121005, end: 20121017
  44. ASPARA [Concomitant]
     Indication: ELECTROLYTE IMBALANCE
     Dosage: STRENGTH: 10 MEQ/10 ML
     Dates: start: 20121030, end: 20130905
  45. CEFEPIME HYDROCHLORIDE [Concomitant]
     Indication: ANTIBIOTIC PROPHYLAXIS
     Dosage: STRENGTH: 1 G
     Route: 042
     Dates: start: 20121027, end: 20130228
  46. CHLOR-TRIMETON [Concomitant]
     Indication: PROPHYLAXIS
     Dosage: STRENGTH: 10 MG/1 ML
     Dates: start: 20121103, end: 20130905
  47. CALCIUM CHLORIDE ANHYDROUS [Concomitant]
     Indication: ELECTROLYTE IMBALANCE
     Dosage: STRENGTH: 2% 20 ML
     Dates: start: 20121119, end: 20130329
  48. SODIUM CHLORIDE [Concomitant]
     Indication: ELECTROLYTE IMBALANCE
     Dosage: STRENGTH: 2 G (34 MEQ)/20 ML
     Dates: start: 20121212, end: 20121225
  49. NEUTROGIN [Concomitant]
     Indication: FEBRILE NEUTROPENIA
     Dosage: STRENGTH: 10 MCG
     Dates: start: 20121213, end: 20130905
  50. MEROPENEM [Concomitant]
     Indication: PYREXIA
     Dosage: I.V. INFUSION 0.5 G
     Route: 041
     Dates: start: 20121214, end: 20121227
  51. PENTAGIN [Concomitant]
     Dosage: STRENGTH: 15 MG/1 ML
     Dates: start: 20130106, end: 20130310
  52. CEFTAZIDIME [Concomitant]
     Indication: PYREXIA
     Dosage: STRENGTH: 1 G
     Route: 042
     Dates: start: 20121228, end: 20130104
  53. ASPARA POTASSIUM [Concomitant]
     Indication: ELECTROLYTE IMBALANCE
     Dosage: STRENGTH: 300 MG
     Route: 048
     Dates: start: 20120918, end: 20121011
  54. GAMOFA D [Concomitant]
     Indication: GASTRITIS PROPHYLAXIS
     Dosage: STRENGTH: 20 MG
     Route: 048
     Dates: start: 20120918, end: 20121017
  55. CRAVIT [Concomitant]
     Indication: ANTIBIOTIC PROPHYLAXIS
     Dosage: STRENGTH: 500 MG
     Route: 048
     Dates: start: 20120926, end: 20121017
  56. ZOVIRAX [Concomitant]
     Dosage: STRENGTH: 200 MG
     Route: 048
     Dates: start: 20120926, end: 20130126
  57. INTAL [Concomitant]
     Indication: RHINITIS ALLERGIC
     Dosage: NASAL SOLUTION 2% 9.5 ML
     Route: 045
     Dates: start: 20120928, end: 20120928
  58. POSTERISAN FORTE [Concomitant]
     Indication: ADVERSE EVENT
     Route: 062
     Dates: start: 20121003, end: 20121004
  59. BENZETHONIUM CHLORIDE [Concomitant]
     Indication: STERILISATION
     Dosage: 0.2% MOUTHWASH SOLUTION 40 ML
     Route: 049
     Dates: start: 20120920, end: 20121006
  60. BENZETHONIUM CHLORIDE [Concomitant]
     Indication: ANTIBIOTIC PROPHYLAXIS
     Dosage: 0.2% MOUTHWASH SOLUTION 40 ML
     Route: 049
     Dates: start: 20120920, end: 20121006
  61. URSO [Concomitant]
     Indication: PROPHYLAXIS
     Dosage: STRENGTH: 100 MG
     Route: 048
     Dates: start: 20120926, end: 20121227
  62. WYPAX [Concomitant]
     Indication: INSOMNIA
     Dosage: STRENGTH: 1.0 MG
     Route: 048
     Dates: start: 20121005, end: 20121205
  63. SODIUM GUALENATE [Concomitant]
     Indication: ADVERSE EVENT
     Dosage: 3000-FOLD
     Route: 062
     Dates: start: 20121009, end: 20121203
  64. XYLOCAINE [Concomitant]
     Indication: ADVERSE EVENT
     Dosage: JELLY 2% 30 ML
     Route: 048
     Dates: start: 20121010, end: 20121203
  65. CALONAL [Concomitant]
     Indication: PAIN
     Dosage: STRENGTH: 200 MG
     Route: 048
     Dates: start: 20121025, end: 20130311
  66. SAMSCA [Concomitant]
     Indication: FLUID RETENTION
     Dosage: STRENGTH: 15 MG
     Route: 048
     Dates: start: 20121019, end: 20130905
  67. ITRIZOLE [Concomitant]
     Indication: ANTIBIOTIC PROPHYLAXIS
     Dosage: SOLUTION 10 MG/ML
     Route: 048
     Dates: start: 20121029, end: 20121121
  68. ITRIZOLE [Concomitant]
     Indication: ANTIFUNGAL PROPHYLAXIS
     Dosage: SOLUTION 10 MG/ML
     Route: 048
     Dates: start: 20121029, end: 20121121
  69. ITRIZOLE [Concomitant]
     Indication: ANTIBIOTIC PROPHYLAXIS
     Dosage: STRENGTH: 50 MG
     Route: 048
     Dates: start: 20121120, end: 20130130
  70. ITRIZOLE [Concomitant]
     Indication: ANTIFUNGAL PROPHYLAXIS
     Dosage: STRENGTH: 50 MG
     Route: 048
     Dates: start: 20121120, end: 20130130
  71. NEXIUM [Concomitant]
     Indication: PROPHYLAXIS AGAINST GASTROINTESTINAL ULCER
     Dosage: STRENGTH: 20 MG
     Route: 048
     Dates: start: 20121027, end: 20130905
  72. HIRUDOID [Concomitant]
     Indication: PROPHYLAXIS
     Route: 062
     Dates: start: 20120917, end: 20121220
  73. SODIUM PICOSULFATE [Concomitant]
     Indication: PROPHYLAXIS
     Dosage: SOLUTION 10 ML
     Route: 048
     Dates: start: 20121108, end: 20121108
  74. ALL OTHER THERAPEUTIC PRODUCTS [Concomitant]
     Indication: PROPHYLAXIS
     Route: 048
     Dates: start: 20121108, end: 20121108
  75. LOXONIN [Concomitant]
     Indication: PYREXIA
     Dosage: STRENGTH: 60 MG
     Route: 048
     Dates: start: 20121106, end: 20130307
  76. LOXONIN [Concomitant]
     Indication: ADVERSE EVENT
     Dosage: STRENGTH: 60 MG
     Route: 048
     Dates: start: 20121106, end: 20130307
  77. LOXONIN [Concomitant]
     Indication: PYREXIA
     Dosage: TAPE 50 MG
     Route: 062
     Dates: start: 20121114, end: 20121114
  78. LOXONIN [Concomitant]
     Indication: ADVERSE EVENT
     Dosage: TAPE 50 MG
     Route: 062
     Dates: start: 20121114, end: 20121114
  79. ADOFEED [Concomitant]
     Indication: ADVERSE EVENT
     Dosage: STRENGTH: 40 MG
     Route: 062
     Dates: start: 20121113, end: 20121113
  80. FLUITRAN [Concomitant]
     Indication: FLUID RETENTION
     Dosage: STRENGTH: 1MG
     Route: 048
     Dates: start: 20121212, end: 20130905
  81. POLARAMINE [Concomitant]
     Indication: FLUID RETENTION
     Dosage: STRENGTH: 2MG
     Route: 048
     Dates: start: 20130206, end: 20130307

REACTIONS (25)
  - Bladder tamponade [Recovered/Resolved]
  - Post transplant lymphoproliferative disorder [Recovering/Resolving]
  - Pain [Recovering/Resolving]
  - Cytomegalovirus viraemia [Recovered/Resolved]
  - Pneumonia viral [Not Recovered/Not Resolved]
  - Chest pain [Fatal]
  - Pericardial effusion [Fatal]
  - Disseminated intravascular coagulation [Recovering/Resolving]
  - Hypertension [Not Recovered/Not Resolved]
  - Status asthmaticus [Recovered/Resolved]
  - Thrombotic microangiopathy [Recovering/Resolving]
  - Asthma [Recovering/Resolving]
  - Renal impairment [Not Recovered/Not Resolved]
  - Nephrogenic anaemia [Recovering/Resolving]
  - Cough [Recovering/Resolving]
  - Serum ferritin increased [Not Recovered/Not Resolved]
  - Graft versus host disease in lung [Recovering/Resolving]
  - Bacterial infection [Recovered/Resolved]
  - Diarrhoea [Recovering/Resolving]
  - Neutrophil count decreased [Recovering/Resolving]
  - Pyrexia [Recovering/Resolving]
  - Cystitis haemorrhagic [Not Recovered/Not Resolved]
  - Tendonitis [Unknown]
  - Proctalgia [Recovering/Resolving]
  - Hypoalbuminaemia [Recovering/Resolving]
